FAERS Safety Report 9496717 (Version 1)
Quarter: 2013Q3

REPORT INFORMATION
  Report Type: Spontaneous
  Country: US (occurrence: None)
  Receive Date: 20130903
  Receipt Date: 20130903
  Transmission Date: 20140515
  Serious: Yes (Death)
  Sender: FDA-Public Use
  Company Number: None

PATIENT
  Age: 69 Year
  Sex: Male
  Weight: 111.13 kg

DRUGS (1)
  1. REMICADE [Suspect]
     Dates: start: 2003, end: 2012

REACTIONS (1)
  - Death [None]
